FAERS Safety Report 17507096 (Version 6)
Quarter: 2020Q4

REPORT INFORMATION
  Report Type: Report from Study
  Country: DE (occurrence: DE)
  Receive Date: 20200306
  Receipt Date: 20201123
  Transmission Date: 20210113
  Serious: Yes (Other)
  Sender: FDA-Public Use
  Company Number: DE-SUN PHARMACEUTICAL INDUSTRIES LTD-2020RR-238555

PATIENT
  Age: 79 Year
  Sex: Female
  Weight: 56 kg

DRUGS (11)
  1. LEVOTHYROXIN [Concomitant]
     Active Substance: LEVOTHYROXINE
     Indication: PRE-EXISTING DISEASE
     Dosage: 100 MILLIGRAM, DAILY
     Route: 048
     Dates: start: 20150417
  2. PREDNISOLON [Concomitant]
     Active Substance: PREDNISOLONE
     Indication: PRE-EXISTING DISEASE
     Dosage: 5 MILLIGRAM, DAILY
     Route: 048
     Dates: start: 20180711
  3. ODOMZO [Suspect]
     Active Substance: SONIDEGIB
     Indication: BASAL CELL CARCINOMA
     Dosage: 200 MILLIGRAM, DAILY
     Route: 048
     Dates: start: 20190927, end: 20200127
  4. ALENDRONSAURE [Concomitant]
     Active Substance: ALENDRONIC ACID
     Indication: PRE-EXISTING DISEASE
     Dosage: 70 MILLIGRAM, WEEKLY
     Route: 048
     Dates: start: 20190412
  5. METOPROLOL. [Concomitant]
     Active Substance: METOPROLOL
     Indication: PRE-EXISTING DISEASE
     Dosage: 95 MILLIGRAM, DAILY
     Route: 048
     Dates: start: 20181008
  6. MARCUMAR [Concomitant]
     Active Substance: PHENPROCOUMON
     Indication: PRE-EXISTING DISEASE
     Dosage: 1.25 MILLIGRAM, DAILY
     Route: 048
     Dates: start: 20151002
  7. RAMIPRIL. [Concomitant]
     Active Substance: RAMIPRIL
     Indication: PRE-EXISTING DISEASE
     Dosage: 10 MILLIGRAM, DAILY
     Route: 048
     Dates: start: 20171214
  8. TORASEMID [Concomitant]
     Active Substance: TORSEMIDE
     Indication: PRE-EXISTING DISEASE
     Dosage: 30 MILLIGRAM, DAILY
     Route: 048
     Dates: start: 20181008
  9. BETA-ACETYLDIGOXIN [Concomitant]
     Active Substance: .BETA.-ACETYLDIGOXIN
     Indication: PRE-EXISTING DISEASE
     Dosage: 0.1 MILLIGRAM, DAILY
     Route: 048
     Dates: start: 20150804
  10. METHOTREXAT [Concomitant]
     Active Substance: METHOTREXATE
     Indication: PRE-EXISTING DISEASE
     Dosage: 10 MILLIGRAM, WEEKLY
     Route: 048
     Dates: start: 20180727
  11. LOVASTATIN. [Concomitant]
     Active Substance: LOVASTATIN
     Indication: PRE-EXISTING DISEASE
     Dosage: 20 MILLIGRAM, DAILY
     Route: 048
     Dates: start: 20150610

REACTIONS (1)
  - Disease progression [Unknown]

NARRATIVE: CASE EVENT DATE: 20200127
